FAERS Safety Report 12826811 (Version 2)
Quarter: 2017Q1

REPORT INFORMATION
  Report Type: Spontaneous
  Country: JP (occurrence: JP)
  Receive Date: 20161007
  Receipt Date: 20170130
  Transmission Date: 20170428
  Serious: Yes (Other)
  Sender: FDA-Public Use
  Company Number: JP-GILEAD-2016-0236178

PATIENT
  Age: 56 Year
  Sex: Female

DRUGS (7)
  1. HALCION [Concomitant]
     Active Substance: TRIAZOLAM
  2. SOVALDI [Suspect]
     Active Substance: SOFOSBUVIR
     Indication: CHRONIC HEPATITIS C
     Dosage: 400 MG, UNK
     Route: 048
     Dates: start: 20160602, end: 20160824
  3. PROMAC D [Suspect]
     Active Substance: POLAPREZINC
     Indication: ABDOMINAL DISCOMFORT
     Dosage: 150 MG, UNK
     Route: 065
     Dates: start: 20160714, end: 20160728
  4. OLMETEC [Concomitant]
     Active Substance: OLMESARTAN MEDOXOMIL
  5. ACINON /00867001/ [Suspect]
     Active Substance: NIZATIDINE
     Indication: ABDOMINAL DISCOMFORT
     Dosage: 300 MG, UNK
     Route: 065
     Dates: start: 20160714, end: 20160728
  6. AMLODIPINE [Concomitant]
     Active Substance: AMLODIPINE BESYLATE
  7. COPEGUS [Concomitant]
     Active Substance: RIBAVIRIN
     Indication: CHRONIC HEPATITIS C
     Dosage: 600 MG, UNK
     Route: 048
     Dates: start: 20160602, end: 20160824

REACTIONS (4)
  - Stomatitis [Unknown]
  - Abdominal discomfort [Unknown]
  - Hepatic function abnormal [Recovering/Resolving]
  - Nausea [Unknown]

NARRATIVE: CASE EVENT DATE: 201607
